FAERS Safety Report 16803770 (Version 1)
Quarter: 2019Q3

REPORT INFORMATION
  Report Type: Spontaneous
  Country: US (occurrence: US)
  Receive Date: 20190723
  Receipt Date: 20190723
  Transmission Date: 20191005
  Serious: No
  Sender: FDA-Public Use
  Company Number: None

PATIENT
  Age: 37 Year
  Sex: Male

DRUGS (1)
  1. COBICISTAT/ELVITEGRAVIR/EMTRICITABINE.TENOFOVIR [Suspect]
     Active Substance: COBICISTAT\ELVITEGRAVIR\EMTRICITABINE\TENOFOVIR
     Indication: HIV INFECTION
     Dates: start: 20190501, end: 20190510

REACTIONS (4)
  - Confusional state [None]
  - Mania [None]
  - Mental status changes [None]
  - Hallucination [None]

NARRATIVE: CASE EVENT DATE: 20190510
